FAERS Safety Report 7016573-9 (Version None)
Quarter: 2010Q3

REPORT INFORMATION
  Report Type: 
  Country: None (occurrence: None)
  Receive Date: 20100927
  Receipt Date: 20100922
  Transmission Date: 20110219
  Serious: Yes (Death)
  Sender: FDA-Public Use
  Company Number: A0883077A

PATIENT
  Age: 40 Year
  Sex: Female

DRUGS (1)
  1. PROMACTA [Suspect]

REACTIONS (1)
  - DEATH [None]
